FAERS Safety Report 5796351-9 (Version None)
Quarter: 2008Q2

REPORT INFORMATION
  Report Type: 
  Country: None (occurrence: None)
  Receive Date: 20080630
  Receipt Date: 20080630
  Transmission Date: 20081010
  Serious: Yes (Other)
  Sender: FDA-Public Use
  Company Number: None

PATIENT
  Age: 37 Year
  Sex: Female
  Weight: 54.8852 kg

DRUGS (1)
  1. BUDEPRION XL TEVA USA [Suspect]
     Indication: DEPRESSION
     Dosage: 150 DAILY PO
     Route: 048
     Dates: start: 20080617, end: 20080623

REACTIONS (21)
  - ABNORMAL SENSATION IN EYE [None]
  - ASTHENIA [None]
  - CRYING [None]
  - DEPRESSION [None]
  - DIPLOPIA [None]
  - DRUG INEFFECTIVE [None]
  - DRY EYE [None]
  - EYE DISORDER [None]
  - EYE IRRITATION [None]
  - EYE PRURITUS [None]
  - FATIGUE [None]
  - FEELING JITTERY [None]
  - FEELING OF DESPAIR [None]
  - HALLUCINATION, VISUAL [None]
  - HALO VISION [None]
  - INSOMNIA [None]
  - PHARMACEUTICAL PRODUCT COMPLAINT [None]
  - SENSATION OF FOREIGN BODY [None]
  - SUICIDAL IDEATION [None]
  - THERAPEUTIC RESPONSE UNEXPECTED WITH DRUG SUBSTITUTION [None]
  - VISION BLURRED [None]
